FAERS Safety Report 24153446 (Version 1)
Quarter: 2024Q3

REPORT INFORMATION
  Report Type: Spontaneous
  Country: US (occurrence: US)
  Receive Date: 20240730
  Receipt Date: 20240730
  Transmission Date: 20241017
  Serious: Yes (Hospitalization)
  Sender: SANDOZ
  Company Number: US-SANDOZ-SDZ2024US068760

PATIENT
  Sex: Female

DRUGS (1)
  1. TREPROSTINIL [Suspect]
     Active Substance: TREPROSTINIL
     Indication: Pulmonary arterial hypertension
     Dosage: UNK, 16 NG/MG/KG, CONTINUOUS
     Route: 042
     Dates: start: 202407

REACTIONS (5)
  - Oedema peripheral [Unknown]
  - Weight increased [Unknown]
  - Localised oedema [Unknown]
  - Face oedema [Unknown]
  - Headache [Unknown]
